FAERS Safety Report 4846455-X (Version None)
Quarter: 2005Q4

REPORT INFORMATION
  Report Type: 
  Country: None (occurrence: None)
  Receive Date: 20051201
  Receipt Date: 20051115
  Transmission Date: 20060501
  Serious: Yes (Hospitalization)
  Sender: FDA-Public Use
  Company Number: 12576

PATIENT
  Age: 74 Year
  Sex: Male
  Weight: 57 kg

DRUGS (9)
  1. METHOTREXATE [Suspect]
     Indication: PLEURAL MESOTHELIOMA
     Dosage: 150 MG QD IV
     Route: 042
     Dates: start: 20050518, end: 20050809
  2. CAMPTOSAR [Concomitant]
  3. DOXORUBICIN HCL [Concomitant]
  4. LEUCOVORIN CALCIUM [Concomitant]
  5. PARIET [Concomitant]
  6. LOXONIN [Concomitant]
  7. MUCOSTA [Concomitant]
  8. DEPAS [Concomitant]
  9. BROCIN-CODEINE [Concomitant]

REACTIONS (2)
  - INTERSTITIAL LUNG DISEASE [None]
  - LYMPHOCYTE STIMULATION TEST POSITIVE [None]
